FAERS Safety Report 5426296-5 (Version None)
Quarter: 2007Q3

REPORT INFORMATION
  Report Type: 
  Country: None (occurrence: None)
  Receive Date: 20070827
  Receipt Date: 20070815
  Transmission Date: 20080115
  Serious: Yes (Other)
  Sender: FDA-Public Use
  Company Number: BR-ROCHE-472600

PATIENT

DRUGS (1)
  1. ISOTRETINOIN [Suspect]
     Indication: DRUG USE FOR UNKNOWN INDICATION
     Dosage: THERAPY STOPPED 19 DAYS PRIOR TO THE ESTIMATED CONCEPTION DATE.
     Dates: end: 20060101

REACTIONS (1)
  - PREMATURE LABOUR [None]
